FAERS Safety Report 12085982 (Version 1)
Quarter: 2016Q1

REPORT INFORMATION
  Report Type: Spontaneous
  Country: US (occurrence: US)
  Receive Date: 20160217
  Receipt Date: 20160217
  Transmission Date: 20160526
  Serious: Yes (Hospitalization)
  Sender: FDA-Public Use
  Company Number: US-BIOGEN-2016BI00189757

PATIENT

DRUGS (1)
  1. TYSABRI [Suspect]
     Active Substance: NATALIZUMAB
     Indication: MULTIPLE SCLEROSIS
     Route: 065
     Dates: start: 200806

REACTIONS (5)
  - Immune system disorder [Unknown]
  - Pneumonia [Unknown]
  - Meningitis [Unknown]
  - Uhthoff^s phenomenon [Recovered/Resolved]
  - Croup infectious [Unknown]
